FAERS Safety Report 5477205-4 (Version None)
Quarter: 2007Q4

REPORT INFORMATION
  Report Type: 
  Country: None (occurrence: None)
  Receive Date: 20071004
  Receipt Date: 20071001
  Transmission Date: 20080405
  Serious: Yes (Other)
  Sender: FDA-Public Use
  Company Number: B0487799A

PATIENT
  Sex: Male

DRUGS (2)
  1. REQUIP [Suspect]
     Indication: PARKINSON'S DISEASE
     Route: 048
     Dates: start: 20070801
  2. CABERGOLINE [Concomitant]
     Route: 048

REACTIONS (2)
  - SKIN ODOUR ABNORMAL [None]
  - SUDDEN ONSET OF SLEEP [None]
